FAERS Safety Report 10018632 (Version 1)
Quarter: 2014Q1

REPORT INFORMATION
  Report Type: Spontaneous
  Country: US (occurrence: US)
  Receive Date: 20140318
  Receipt Date: 20140318
  Transmission Date: 20141002
  Serious: Yes (Death)
  Sender: FDA-Public Use
  Company Number: US-ACTAVIS-2014-05080

PATIENT
  Age: 36 Year
  Sex: Male
  Weight: 100 kg

DRUGS (3)
  1. TRAMADOL HYDROCHLORIDE (AELLC) [Suspect]
     Indication: INTENTIONAL OVERDOSE
     Dosage: 27 TABLET( 50 MG EACH), UNKNOWN
     Route: 048
  2. MIXED AMPHETAMINES (AELLC) [Suspect]
     Indication: INTENTIONAL OVERDOSE
     Dosage: UNK
     Route: 065
  3. METHYLPHENIDATE HYDROCHLORIDE (WATSON LABORATORIES) [Suspect]
     Indication: PRODUCT USED FOR UNKNOWN INDICATION
     Dosage: UNK
     Route: 065

REACTIONS (3)
  - Completed suicide [Fatal]
  - Intentional overdose [Fatal]
  - Toxicity to various agents [Fatal]
